FAERS Safety Report 10246087 (Version 1)
Quarter: 2014Q2

REPORT INFORMATION
  Report Type: Spontaneous
  Country: US (occurrence: None)
  Receive Date: 20140617
  Receipt Date: 20140617
  Transmission Date: 20141212
  Serious: Yes (Other)
  Sender: FDA-Public Use
  Company Number: 2014VER00017

PATIENT
  Age: 17 Year
  Sex: Female

DRUGS (5)
  1. MYORISAN 40 MG (ISOTRETINOIN) CAPSULE [Suspect]
     Indication: ACNE
     Dosage: 1X/DAY
     Route: 048
     Dates: start: 20131204, end: 20140101
  2. MULTIVITAMIN WITH IRON TABLET [Concomitant]
  3. CLEOCIN T LOTION [Concomitant]
  4. RETAN A 0.05% CREAM [Concomitant]
  5. ALLERCLEAR D 24-HOUR 10 MG/240 MG [Concomitant]

REACTIONS (6)
  - Mood altered [None]
  - Adjustment disorder [None]
  - Social avoidant behaviour [None]
  - Personality change [None]
  - Crying [None]
  - Drug dose omission [None]
